FAERS Safety Report 22287762 (Version 1)
Quarter: 2023Q2

REPORT INFORMATION
  Report Type: Spontaneous
  Country: ES (occurrence: ES)
  Receive Date: 20230505
  Receipt Date: 20230505
  Transmission Date: 20230722
  Serious: Yes (Other)
  Sender: FDA-Public Use
  Company Number: None

PATIENT
  Age: 79 Year
  Sex: Female

DRUGS (8)
  1. AMOXICILLIN [Suspect]
     Active Substance: AMOXICILLIN
     Indication: Product used for unknown indication
     Dosage: AMOXICILINA (108A)
     Route: 065
     Dates: start: 20230326, end: 20230326
  2. INSULIN ASPART [Concomitant]
     Active Substance: INSULIN ASPART
     Indication: Product used for unknown indication
     Dosage: 30 FLEXPEN, 5 PRE-FILLED PENS OF 3 ML
     Route: 065
     Dates: start: 20210112
  3. TORSEMIDE [Concomitant]
     Active Substance: TORSEMIDE
     Indication: Product used for unknown indication
     Dosage: EFG, 30 TABLETS
     Route: 065
     Dates: start: 20220912
  4. CALCIUM CARBONATE [Concomitant]
     Active Substance: CALCIUM CARBONATE
     Indication: Product used for unknown indication
     Dosage: 60 ENVELOPES
     Route: 065
     Dates: start: 20230324
  5. DOXAZOSINA NEO CINFA [Concomitant]
     Indication: Product used for unknown indication
     Dosage: EFG, 28 TABLETS
     Route: 065
     Dates: start: 20190520
  6. FEMARA [Concomitant]
     Active Substance: LETROZOLE
     Indication: Product used for unknown indication
     Dosage: 30 TABLETS
     Route: 065
     Dates: start: 20230301
  7. CAPTOPRIL CINFA [Concomitant]
     Indication: Product used for unknown indication
     Dosage: EFG, 30 TABLETS
     Route: 065
     Dates: start: 20120630
  8. ATORVASTATIN CALCIUM [Concomitant]
     Active Substance: ATORVASTATIN CALCIUM
     Indication: Product used for unknown indication
     Dosage: EFG, 28 TABLETS
     Route: 065
     Dates: start: 20210126

REACTIONS (2)
  - Dyspnoea [Recovered/Resolved]
  - Lip oedema [Recovered/Resolved]

NARRATIVE: CASE EVENT DATE: 20230326
